FAERS Safety Report 6307736-6 (Version None)
Quarter: 2009Q3

REPORT INFORMATION
  Report Type: 
  Country: None (occurrence: None)
  Receive Date: 20090812
  Receipt Date: 20090812
  Transmission Date: 20100115
  Serious: No
  Sender: FDA-Public Use
  Company Number: None

PATIENT

DRUGS (2)
  1. OCUFRESH EYE WASH 20ML NO NAME ON LABEL [Suspect]
     Dosage: 20ML TOP
     Route: 061
  2. OCUFRESH EYE WASH 16 FL. OZ. OPTICS LABORATORY INC. EL MONTE CA [Suspect]
     Dosage: 16 FL. OZ. TOP
     Route: 061

REACTIONS (1)
  - NO ADVERSE EVENT [None]
